FAERS Safety Report 9403672 (Version 1)
Quarter: 2013Q3

REPORT INFORMATION
  Report Type: Spontaneous
  Country: CA (occurrence: CA)
  Receive Date: 20130717
  Receipt Date: 20130717
  Transmission Date: 20140515
  Serious: Yes (Life-Threatening, Hospitalization)
  Sender: FDA-Public Use
  Company Number: CA-ROCHE-1248466

PATIENT
  Age: 59 Year
  Sex: Male
  Weight: 50 kg

DRUGS (34)
  1. CEFTRIAXONE [Suspect]
     Indication: PRODUCT USED FOR UNKNOWN INDICATION
     Dosage: FOR 6 DAYS
     Route: 042
  2. CEFTRIAXONE [Suspect]
     Route: 030
  3. WARFARIN [Suspect]
     Indication: PRODUCT USED FOR UNKNOWN INDICATION
     Route: 048
  4. MIDAZOLAM ROCHE UNSPEC. [Concomitant]
     Route: 065
  5. ACETAMINOPHEN [Concomitant]
     Route: 048
  6. ACETYLSALICYLIC ACID [Concomitant]
     Dosage: TABLET (ENTERIC-COATED)
     Route: 065
  7. ARANESP [Concomitant]
     Dosage: SOLUTION INTRAVENOUS
     Route: 058
  8. BISACODYL [Concomitant]
     Dosage: SUPPOSITORY
     Route: 054
  9. CALCIUM CARBONATE [Concomitant]
     Route: 065
  10. CALCIUM GLUCONATE [Concomitant]
     Route: 042
  11. DIMENHYDRINATE [Concomitant]
     Route: 065
  12. DOCUSATE SODIUM [Concomitant]
     Route: 048
  13. FERROUS FUMARATE [Concomitant]
     Route: 065
  14. FUROSEMIDE [Concomitant]
     Route: 065
  15. GLYCERIN SUPPOSITORIES [Concomitant]
     Dosage: SUPPOSITORY
     Route: 054
  16. HYDROCORTISONE [Concomitant]
     Dosage: TOPICAL
     Route: 065
  17. HYDROMORPHONE [Concomitant]
     Route: 042
  18. HYDROMORPHONE HYDROCHLORIDE [Concomitant]
     Dosage: SOLUTION INTRAMUSCULAR
     Route: 042
  19. LIPITOR [Concomitant]
     Route: 065
  20. MAGNESIUM SULFATE [Concomitant]
     Route: 065
  21. METOPROLOL [Concomitant]
     Route: 065
  22. MIDAZOLAM ROCHE UNSPEC. [Concomitant]
  23. NOREPINEPHRINE [Concomitant]
     Dosage: LIQUID INTRAVENOUS
     Route: 042
  24. PREVACID [Concomitant]
     Route: 065
  25. RAMIPRIL [Concomitant]
     Route: 065
  26. SALBUTAMOL [Concomitant]
     Route: 055
  27. SALBUTAMOL [Concomitant]
     Dosage: INHALATION
     Route: 055
  28. SODIUM PHOSPHATE [Concomitant]
     Dosage: SOLUTION INTRAVENOUS
     Route: 042
  29. THIAMINE HCL [Concomitant]
     Route: 042
  30. TYLENOL #3 (CANADA) [Concomitant]
     Dosage: TABLET
     Route: 065
  31. ZINC GLUCONATE [Concomitant]
     Route: 065
  32. HEPARIN SODIUM [Concomitant]
     Route: 042
  33. MIDAZOLAM ROCHE UNSPEC. [Concomitant]
     Route: 065
  34. RANITIDINE [Concomitant]
     Route: 065

REACTIONS (8)
  - Conjunctivitis [Unknown]
  - Dermatitis exfoliative [Unknown]
  - Macule [Unknown]
  - Pain of skin [Unknown]
  - Pruritus [Unknown]
  - Rash erythematous [Unknown]
  - Skin exfoliation [Unknown]
  - Stevens-Johnson syndrome [Unknown]
